FAERS Safety Report 5847575-3 (Version None)
Quarter: 2008Q3

REPORT INFORMATION
  Report Type: 
  Country: None (occurrence: None)
  Receive Date: 20080818
  Receipt Date: 20080225
  Transmission Date: 20090109
  Serious: No
  Sender: FDA-Public Use
  Company Number: US-BAYER-200820234GPV

PATIENT
  Age: 56 Year
  Sex: Male

DRUGS (3)
  1. SORAFENIB [Suspect]
     Indication: GASTROINTESTINAL STROMAL TUMOUR
     Route: 065
  2. SUNITINIB [Suspect]
     Indication: GASTROINTESTINAL STROMAL TUMOUR
     Route: 065
  3. ANTIHYPERTENSIVE MEDICATION [Concomitant]
     Indication: HYPERTENSION
     Route: 065

REACTIONS (5)
  - HYPERTENSION [None]
  - HYPOALBUMINAEMIA [None]
  - OEDEMA [None]
  - PRE-ECLAMPSIA [None]
  - PROTEINURIA [None]
